FAERS Safety Report 19679360 (Version 1)
Quarter: 2021Q3

REPORT INFORMATION
  Report Type: Spontaneous
  Country: US (occurrence: US)
  Receive Date: 20210809
  Receipt Date: 20210809
  Transmission Date: 20211014
  Serious: Yes (Death)
  Sender: FDA-Public Use
  Company Number: None

PATIENT
  Age: 73 Year
  Sex: Male

DRUGS (1)
  1. DULOXETINE HCL 30MG EC CAP [Suspect]
     Active Substance: DULOXETINE HYDROCHLORIDE
     Indication: PAIN
     Dosage: ?          QUANTITY:1 DF DOSAGE FORM;?
     Route: 048
     Dates: start: 20210202, end: 20210303

REACTIONS (12)
  - Product dispensing issue [None]
  - Product supply issue [None]
  - Head injury [None]
  - Withdrawal syndrome [None]
  - Suicidal ideation [None]
  - Gun shot wound [None]
  - Intentional self-injury [None]
  - Product communication issue [None]
  - Product use complaint [None]
  - Completed suicide [None]
  - Product dispensing error [None]
  - Agitation [None]

NARRATIVE: CASE EVENT DATE: 20210322
